FAERS Safety Report 25613749 (Version 1)
Quarter: 2025Q3

REPORT INFORMATION
  Report Type: Spontaneous
  Country: US (occurrence: US)
  Receive Date: 20250728
  Receipt Date: 20250728
  Transmission Date: 20251021
  Serious: No
  Sender: MYLAN
  Company Number: US-MYLANLABS-2025M1061110

PATIENT
  Sex: Female
  Weight: 49.9 kg

DRUGS (2)
  1. RELPAX [Suspect]
     Active Substance: ELETRIPTAN HYDROBROMIDE
     Indication: Headache
     Dosage: 40 MILLIGRAM, Q2H (EVERY 2 HOURS)
     Dates: start: 2017
  2. RELPAX [Suspect]
     Active Substance: ELETRIPTAN HYDROBROMIDE
     Indication: Headache

REACTIONS (10)
  - Fungal infection [Unknown]
  - Localised infection [Unknown]
  - Pain in extremity [Unknown]
  - Limb injury [Unknown]
  - Skin discharge [Unknown]
  - Impaired healing [Unknown]
  - Wound haemorrhage [Unknown]
  - Off label use [Unknown]
  - Poor quality product administered [Unknown]
  - Product contamination physical [Unknown]

NARRATIVE: CASE EVENT DATE: 20180101
